FAERS Safety Report 6158887-0 (Version None)
Quarter: 2009Q2

REPORT INFORMATION
  Report Type: 
  Country: None (occurrence: None)
  Receive Date: 20090417
  Receipt Date: 20090406
  Transmission Date: 20091009
  Serious: Yes (Hospitalization)
  Sender: FDA-Public Use
  Company Number: GB-JNJFOC-20090402402

PATIENT
  Age: 34 Year
  Sex: Male

DRUGS (6)
  1. REMICADE [Suspect]
     Dosage: AT WEEK 46 (MOST RECENT INFUSION)
     Route: 042
  2. REMICADE [Suspect]
     Indication: DRUG USE FOR UNKNOWN INDICATION
     Route: 042
  3. ACETAMINOPHEN W/ CODEINE [Concomitant]
     Indication: ANALGESIA
  4. METHOTREXATE [Concomitant]
     Indication: PSORIATIC ARTHROPATHY
  5. FOLIC ACID [Concomitant]
     Indication: PROPHYLAXIS
  6. FEXOFENADINE [Concomitant]
     Indication: SEASONAL ALLERGY

REACTIONS (1)
  - MENINGITIS TUBERCULOUS [None]
